FAERS Safety Report 6817988-1 (Version None)
Quarter: 2010Q3

REPORT INFORMATION
  Report Type: 
  Country: None (occurrence: None)
  Receive Date: 20100706
  Receipt Date: 20100624
  Transmission Date: 20110219
  Serious: Yes (Hospitalization, Other)
  Sender: FDA-Public Use
  Company Number: GXKR2010HK07082

PATIENT
  Age: 42 Year
  Sex: Male

DRUGS (3)
  1. CLOZAPINE [Suspect]
     Indication: SCHIZOPHRENIA
     Dosage: 50 MG AT 5PM AND 450MG AT 8PM
     Dates: start: 19980101
  2. CLOZAPINE [Suspect]
     Dosage: 50 MG AT 5PM AND 50 MG AT 8PM
  3. CLOZAPINE [Suspect]
     Dosage: SLOWLY INCREASED TO 50 MG AT 5PM AND 250 MG AT 8PM

REACTIONS (8)
  - AGITATION [None]
  - CONFUSIONAL STATE [None]
  - DELIRIUM [None]
  - DRUG WITHDRAWAL SYNDROME [None]
  - FLUSHING [None]
  - HYPERHIDROSIS [None]
  - RESTLESSNESS [None]
  - SALIVARY HYPERSECRETION [None]
